FAERS Safety Report 6133988-1 (Version None)
Quarter: 2009Q1

REPORT INFORMATION
  Report Type: 
  Country: None (occurrence: None)
  Receive Date: 20090326
  Receipt Date: 20090326
  Transmission Date: 20090719
  Serious: Yes (Hospitalization)
  Sender: FDA-Public Use
  Company Number: DE-WYE-G03182409

PATIENT
  Sex: Female

DRUGS (9)
  1. TREVILOR [Suspect]
     Dosage: UNKNOWN
     Route: 048
  2. TREVILOR [Suspect]
     Dosage: OVERDOSE AMOUNT 825 MG
     Route: 048
     Dates: start: 20090220, end: 20090220
  3. CONCERTA [Suspect]
     Dosage: 3 TABLETS (OVERDOSE AMOUNT 108 MG)
     Route: 048
     Dates: start: 20090220, end: 20090220
  4. TRAMADOL HCL [Suspect]
     Dosage: 7 TABLETS (OVERDOSE AMOUNT 700 MG)
     Route: 048
     Dates: start: 20090220, end: 20090220
  5. LAMOTRIGINE [Suspect]
     Dosage: OVERDOSE AMOUNT 525 MG
     Route: 048
     Dates: start: 20090220, end: 20090220
  6. NOVALGIN [Suspect]
     Dosage: 11 TABLETS (OVERDOSE AMOUNT 5500 MG)
     Route: 048
     Dates: start: 20090220, end: 20090220
  7. PANTOPRAZOLE SODIUM [Suspect]
     Dosage: OVERDOSE AMOUNT 60 MG
     Route: 048
     Dates: start: 20090220, end: 20090220
  8. CLEXANE [Suspect]
     Dosage: OVERDOSE AMOUNT 80 MG
     Route: 058
     Dates: start: 20090220, end: 20090220
  9. IBUPROFEN [Suspect]
     Dosage: 12 TABLETS (OVERDOSE AMOUNT 4800 MG)
     Route: 048
     Dates: start: 20090220, end: 20090220

REACTIONS (3)
  - DRUG ABUSE [None]
  - INTENTIONAL OVERDOSE [None]
  - TACHYCARDIA [None]
